FAERS Safety Report 11374547 (Version 1)
Quarter: 2015Q3

REPORT INFORMATION
  Report Type: Spontaneous
  Country: GB (occurrence: GB)
  Receive Date: 20150813
  Receipt Date: 20150813
  Transmission Date: 20151125
  Serious: Yes (Other)
  Sender: FDA-Public Use
  Company Number: GB-HOSPIRA-2970054

PATIENT
  Age: 23 Year
  Sex: Male

DRUGS (1)
  1. ROCURONIUM BROMIDE. [Suspect]
     Active Substance: ROCURONIUM BROMIDE
     Indication: SURGERY
     Route: 042
     Dates: start: 20150725

REACTIONS (3)
  - Erythema [Recovered/Resolved]
  - Anaphylactic reaction [Unknown]
  - Tachycardia [Recovered/Resolved]
